FAERS Safety Report 15887941 (Version 5)
Quarter: 2022Q1

REPORT INFORMATION
  Report Type: Spontaneous
  Country: US (occurrence: US)
  Receive Date: 20190130
  Receipt Date: 20220307
  Transmission Date: 20220424
  Serious: No
  Sender: FDA-Public Use
  Company Number: US-PFIZER INC-2019042492

PATIENT
  Age: 32 Year
  Sex: Female
  Weight: 108.84 kg

DRUGS (9)
  1. SOMAVERT [Suspect]
     Active Substance: PEGVISOMANT
     Indication: Acromegaly
     Dosage: 10 MG, DAILY, (UNDER THE SKIN)
     Dates: start: 20181219
  2. SOMAVERT [Suspect]
     Active Substance: PEGVISOMANT
     Indication: Gigantism
     Dosage: 25 MG, DAILY (UNDER THE SKIN)
     Dates: start: 20181219
  3. SOMAVERT [Suspect]
     Active Substance: PEGVISOMANT
     Indication: Brain neoplasm
     Dosage: 25 MG, UNK
     Dates: start: 20190711
  4. SOMAVERT [Suspect]
     Active Substance: PEGVISOMANT
     Indication: Hormone therapy
     Dosage: 30 MG 1X/DAY (UNDER THE SKIN ONCE DAILY)
     Route: 058
  5. ADVIL [Concomitant]
     Active Substance: IBUPROFEN
     Dosage: 100 MG, UNK
  6. VITAMIN D3 [Concomitant]
     Active Substance: CHOLECALCIFEROL
     Dosage: UNK
  7. TYLENOL [Concomitant]
     Active Substance: ACETAMINOPHEN
     Dosage: 325 MG, UNK
  8. METFORMIN HYDROCHLORIDE [Concomitant]
     Active Substance: METFORMIN HYDROCHLORIDE
     Dosage: UNK
  9. VITAMIN D2 [Concomitant]
     Active Substance: ERGOCALCIFEROL
     Dosage: UNK

REACTIONS (4)
  - Product dose omission issue [Unknown]
  - Chills [Not Recovered/Not Resolved]
  - Hyperhidrosis [Not Recovered/Not Resolved]
  - Insulin-like growth factor increased [Not Recovered/Not Resolved]
